FAERS Safety Report 7674317-1 (Version None)
Quarter: 2011Q3

REPORT INFORMATION
  Report Type: 
  Country: None (occurrence: None)
  Receive Date: 20110808
  Receipt Date: 20110726
  Transmission Date: 20111222
  Serious: Yes (Hospitalization, Other)
  Sender: FDA-Public Use
  Company Number: DSU-2011-05550

PATIENT
  Sex: Female
  Weight: 63.95 kg

DRUGS (23)
  1. CARDIZEM [Suspect]
     Indication: PRODUCT USED FOR UNKNOWN INDICATION
  2. REGLAN [Suspect]
     Indication: PRODUCT USED FOR UNKNOWN INDICATION
  3. DIOVAN [Suspect]
     Indication: PRODUCT USED FOR UNKNOWN INDICATION
  4. LIDOCAINE [Suspect]
     Indication: ANAESTHESIA
     Dates: start: 20100513, end: 20100513
  5. NORVASC [Suspect]
     Indication: HYPERTENSION
     Dosage: 2.5 MG (2.5 MG, QD, ORAL )5MG (5 MG QD) ORAL 10 MG (5 MG, BID) ORAL
     Route: 048
     Dates: start: 19970101
  6. NORVASC [Suspect]
     Indication: HYPERTENSION
     Dosage: 2.5 MG (2.5 MG, QD, ORAL )5MG (5 MG QD) ORAL 10 MG (5 MG, BID) ORAL
     Route: 048
     Dates: start: 20100101
  7. BYSTOLIC [Suspect]
     Indication: PRODUCT USED FOR UNKNOWN INDICATION
  8. AVAPRO [Suspect]
     Indication: HYPERTENSION
  9. MACROBID [Suspect]
     Indication: PRODUCT USED FOR UNKNOWN INDICATION
  10. BENICAR [Suspect]
     Indication: HYPERTENSION
     Dosage: PER ORAL
     Route: 048
     Dates: start: 20070101
  11. FUROSEMIDE [Suspect]
     Indication: PRODUCT USED FOR UNKNOWN INDICATION
  12. LISINOPRIL [Suspect]
     Indication: PRODUCT USED FOR UNKNOWN INDICATION
  13. HYDROCHLOROTHIAZIDE [Suspect]
     Indication: PRODUCT USED FOR UNKNOWN INDICATION
  14. CIPROFLOXACIN [Suspect]
     Indication: PRODUCT USED FOR UNKNOWN INDICATION
  15. LEVAQUIN [Suspect]
     Indication: PRODUCT USED FOR UNKNOWN INDICATION
  16. ATACAND [Suspect]
     Indication: PRODUCT USED FOR UNKNOWN INDICATION
  17. DILANTIN [Suspect]
     Indication: PRODUCT USED FOR UNKNOWN INDICATION
     Dates: start: 19960101
  18. XANAX [Suspect]
     Indication: PRODUCT USED FOR UNKNOWN INDICATION
     Dosage: (1/2 TABLET QD)
  19. DEPAKOTE [Suspect]
     Indication: CONVULSION
     Dates: start: 19960101
  20. BACTRIM [Suspect]
     Indication: PRODUCT USED FOR UNKNOWN INDICATION
  21. LOSARTAN POTASSIUM [Suspect]
     Indication: PRODUCT USED FOR UNKNOWN INDICATION
  22. CLONIDINE [Concomitant]
  23. LEVOTHYROXINE SOIDUM [Concomitant]

REACTIONS (16)
  - BLOOD COUNT ABNORMAL [None]
  - TOE OPERATION [None]
  - DIZZINESS [None]
  - BURNING SENSATION [None]
  - ERYTHEMA [None]
  - LOSS OF CONSCIOUSNESS [None]
  - INGROWING NAIL [None]
  - MYOCARDIAL CALCIFICATION [None]
  - HEADACHE [None]
  - PALPITATIONS [None]
  - INSOMNIA [None]
  - CYSTITIS [None]
  - WEIGHT DECREASED [None]
  - CHOLECYSTECTOMY [None]
  - ABDOMINAL DISTENSION [None]
  - BLOOD PRESSURE INCREASED [None]
